FAERS Safety Report 4661131-4 (Version None)
Quarter: 2005Q2

REPORT INFORMATION
  Report Type: 
  Country: None (occurrence: None)
  Receive Date: 20050428
  Receipt Date: 20050215
  Transmission Date: 20051028
  Serious: Yes (Other)
  Sender: FDA-Public Use
  Company Number: 395673

PATIENT
  Age: 67 Year
  Sex: Female

DRUGS (2)
  1. NAPROSYN [Suspect]
     Dosage: ORAL
     Route: 048
     Dates: start: 20030615
  2. ACETAMINOPHEN AND OXYCODONE HCL [Suspect]
     Dosage: ORAL
     Route: 048
     Dates: start: 20030915

REACTIONS (1)
  - GASTRIC HAEMORRHAGE [None]
